FAERS Safety Report 7948678-X (Version None)
Quarter: 2011Q4

REPORT INFORMATION
  Report Type: 
  Country: None (occurrence: None)
  Receive Date: 20111130
  Receipt Date: 20111122
  Transmission Date: 20120403
  Serious: Yes (Other)
  Sender: FDA-Public Use
  Company Number: GB-UCBSA-046370

PATIENT
  Sex: Male

DRUGS (1)
  1. ACETAMINOPHEN W/ CODEINE [Suspect]
     Route: 048

REACTIONS (2)
  - DYSPHAGIA [None]
  - SURGERY [None]
